FAERS Safety Report 23619711 (Version 1)
Quarter: 2024Q1

REPORT INFORMATION
  Report Type: Spontaneous
  Country: CN (occurrence: CN)
  Receive Date: 20240312
  Receipt Date: 20240312
  Transmission Date: 20240409
  Serious: Yes (Hospitalization, Other)
  Sender: FDA-Public Use
  Company Number: CN-NOVOPROD-1185328

PATIENT
  Age: 63 Year
  Sex: Female

DRUGS (1)
  1. XULTOPHY 100/3.6 [Suspect]
     Active Substance: INSULIN DEGLUDEC\LIRAGLUTIDE
     Indication: Product used for unknown indication
     Dosage: 10 IU, QD
     Dates: start: 20240301

REACTIONS (6)
  - Diabetes mellitus [Unknown]
  - Coronary artery disease [Unknown]
  - Injection site hypersensitivity [Not Recovered/Not Resolved]
  - Injection site pain [Unknown]
  - Vomiting [Unknown]
  - Nausea [Unknown]
